FAERS Safety Report 17791816 (Version 3)
Quarter: 2020Q3

REPORT INFORMATION
  Report Type: Spontaneous
  Country: ES (occurrence: ES)
  Receive Date: 20200515
  Receipt Date: 20200824
  Transmission Date: 20201102
  Serious: Yes (Other)
  Sender: FDA-Public Use
  Company Number: NVSC2020ES131267

PATIENT
  Age: 78 Year
  Sex: Male

DRUGS (9)
  1. LEVOFLOXACIN. [Suspect]
     Active Substance: LEVOFLOXACIN
     Indication: OSTEOMYELITIS
  2. AMIKACIN. [Suspect]
     Active Substance: AMIKACIN
     Indication: OSTEOMYELITIS
     Dosage: UNK
     Route: 065
  3. LEVOFLOXACIN. [Suspect]
     Active Substance: LEVOFLOXACIN
     Indication: PSEUDOMONAS INFECTION
  4. AMIKACIN. [Suspect]
     Active Substance: AMIKACIN
     Indication: STAPHYLOCOCCAL INFECTION
  5. AMIKACIN. [Suspect]
     Active Substance: AMIKACIN
     Indication: PSEUDOMONAS INFECTION
  6. LEVOFLOXACIN. [Suspect]
     Active Substance: LEVOFLOXACIN
     Indication: STAPHYLOCOCCAL INFECTION
     Dosage: UNK
     Route: 048
  7. CEFTAZIDIME. [Suspect]
     Active Substance: CEFTAZIDIME
     Indication: OSTEOMYELITIS
     Dosage: UNK
     Route: 065
  8. CEFTAZIDIME. [Suspect]
     Active Substance: CEFTAZIDIME
     Indication: STAPHYLOCOCCAL INFECTION
  9. CEFTAZIDIME. [Suspect]
     Active Substance: CEFTAZIDIME
     Indication: PSEUDOMONAS INFECTION

REACTIONS (3)
  - Toxic skin eruption [Recovered/Resolved]
  - Therapeutic product effect incomplete [Unknown]
  - Condition aggravated [Recovering/Resolving]
